FAERS Safety Report 20418465 (Version 1)
Quarter: 2022Q1

REPORT INFORMATION
  Report Type: Spontaneous
  Country: US (occurrence: US)
  Receive Date: 20220202
  Receipt Date: 20220202
  Transmission Date: 20220424
  Serious: Yes (Hospitalization, Other)
  Sender: FDA-Public Use
  Company Number: US-009507513-2201USA008347

PATIENT
  Age: 87 Year
  Sex: Male
  Weight: 97 kg

DRUGS (2)
  1. BRIDION [Suspect]
     Active Substance: SUGAMMADEX
     Indication: Surgery
     Dosage: UNK
     Dates: start: 2020, end: 2020
  2. BRIDION [Suspect]
     Active Substance: SUGAMMADEX
     Dosage: DOSE/FREQUENCY: 200MG
     Dates: start: 20220126, end: 20220126

REACTIONS (6)
  - Surgery [Recovering/Resolving]
  - Muscle twitching [Recovering/Resolving]
  - Urticaria [Recovering/Resolving]
  - Hypotension [Recovering/Resolving]
  - Bradycardia [Recovering/Resolving]
  - Incorrect dose administered [Unknown]

NARRATIVE: CASE EVENT DATE: 20220126
